FAERS Safety Report 8385149-3 (Version None)
Quarter: 2012Q2

REPORT INFORMATION
  Report Type: 
  Country: None (occurrence: None)
  Receive Date: 20120524
  Receipt Date: 20120522
  Transmission Date: 20120825
  Serious: Yes (Hospitalization, Other)
  Sender: FDA-Public Use
  Company Number: US-AMGEN-USASP2011063530

PATIENT
  Age: 57 Year
  Sex: Female

DRUGS (1)
  1. ENBREL [Suspect]
     Indication: RHEUMATOID ARTHRITIS
     Dosage: 50 MG, QWK
     Dates: start: 20101001

REACTIONS (22)
  - WRIST FRACTURE [None]
  - MALAISE [None]
  - BALANCE DISORDER [None]
  - FALL [None]
  - FATIGUE [None]
  - PAIN [None]
  - HAEMATURIA [None]
  - ROTATOR CUFF SYNDROME [None]
  - FIBROMYALGIA [None]
  - LUNG NEOPLASM [None]
  - COUGH [None]
  - DRY EYE [None]
  - RHEUMATOID ARTHRITIS [None]
  - DIZZINESS [None]
  - DEPRESSION [None]
  - ASTHENIA [None]
  - ALOPECIA [None]
  - INTERVERTEBRAL DISC DEGENERATION [None]
  - EMPHYSEMA [None]
  - MUSCULAR WEAKNESS [None]
  - INCREASED TENDENCY TO BRUISE [None]
  - INSOMNIA [None]
